FAERS Safety Report 6431119-1 (Version None)
Quarter: 2009Q4

REPORT INFORMATION
  Report Type: 
  Country: None (occurrence: None)
  Receive Date: 20091103
  Receipt Date: 20091019
  Transmission Date: 20100525
  Serious: Yes (Death, Hospitalization)
  Sender: FDA-Public Use
  Company Number: 001054

PATIENT
  Age: 74 Year
  Sex: Male
  Weight: 49 kg

DRUGS (7)
  1. PLETAL [Suspect]
     Indication: CEREBRAL INFARCTION
     Dosage: 81 MG, QD ORAL
     Route: 048
     Dates: start: 20050806, end: 20081005
  2. PRAVASTATIN SODIUM [Suspect]
     Indication: HYPERLIPIDAEMIA
     Dosage: 10 MG, DAILY DOSE, ORAL
     Route: 048
     Dates: start: 20060908, end: 20081013
  3. AMARYL [Suspect]
     Indication: TYPE 2 DIABETES MELLITUS
     Dosage: 1 MG, DAILY DOSE; ORAL
     Route: 048
     Dates: start: 20070309, end: 20080612
  4. AMARYL [Suspect]
     Dosage: 1.5 MG, DAILY DOSE; ORAL
     Route: 048
     Dates: start: 20080613, end: 20081013
  5. MAGNESIUM OXIDE (MAGNESIUM  OXIDE) TABLET, 330 MG REGIMEN #1 [Suspect]
     Indication: CONSTIPATION
     Dosage: 1320 MG, DAILY DOSE; ORAL
     Route: 048
     Dates: start: 20080314, end: 20081018
  6. GLUFAST (MITIGLINIDE CALCIUM HYDRATE) TABLET [Concomitant]
  7. MOHRUS TAPE (KETOPROFEN) TAPE (INCLUDING POULTICE) [Concomitant]

REACTIONS (22)
  - ALANINE AMINOTRANSFERASE INCREASED [None]
  - ASPARTATE AMINOTRANSFERASE INCREASED [None]
  - BILIARY DILATATION [None]
  - BLOOD ALKALINE PHOSPHATASE INCREASED [None]
  - BLOOD GLUCOSE INCREASED [None]
  - BLOOD PRESSURE DECREASED [None]
  - BODY TEMPERATURE DECREASED [None]
  - BRAIN OEDEMA [None]
  - CEREBRAL INFARCTION [None]
  - DYSARTHRIA [None]
  - ENDOSCOPY UPPER GASTROINTESTINAL TRACT ABNORMAL [None]
  - GAMMA-GLUTAMYLTRANSFERASE INCREASED [None]
  - HAEMATEMESIS [None]
  - LIVER ABSCESS [None]
  - MALIGNANT NEOPLASM PROGRESSION [None]
  - METASTASES TO BILIARY TRACT [None]
  - PANCREATIC CARCINOMA [None]
  - PANCREATIC PSEUDOCYST [None]
  - PANCREATITIS [None]
  - SEPSIS [None]
  - UNRESPONSIVE TO STIMULI [None]
  - YELLOW SKIN [None]
